FAERS Safety Report 23325319 (Version 1)
Quarter: 2023Q4

REPORT INFORMATION
  Report Type: Spontaneous
  Country: ES (occurrence: ES)
  Receive Date: 20231221
  Receipt Date: 20231221
  Transmission Date: 20240109
  Serious: Yes (Hospitalization, Other)
  Sender: FDA-Public Use
  Company Number: ES-AEMPS-1462520

PATIENT
  Age: 87 Year
  Sex: Male

DRUGS (2)
  1. DULOXETINE [Suspect]
     Active Substance: DULOXETINE
     Indication: Depression
     Dosage: 30 MILLIGRAM, ONCE A DAY
     Route: 048
     Dates: start: 20230816, end: 20231114
  2. QUETIAPINE FUMARATE [Suspect]
     Active Substance: QUETIAPINE FUMARATE
     Indication: Agitation
     Dosage: 25 MILLIGRAM, ONCE A DAY, 25MG/NIGHT
     Route: 048
     Dates: start: 20231109, end: 20231113

REACTIONS (1)
  - Inappropriate antidiuretic hormone secretion [Recovered/Resolved]

NARRATIVE: CASE EVENT DATE: 20231113
